FAERS Safety Report 6463283-2 (Version None)
Quarter: 2009Q4

REPORT INFORMATION
  Report Type: 
  Country: None (occurrence: None)
  Receive Date: 20091130
  Receipt Date: 20090615
  Transmission Date: 20100525
  Serious: Yes (Other)
  Sender: FDA-Public Use
  Company Number: US-AMGEN-QUU348192

PATIENT
  Sex: Female
  Weight: 71.3 kg

DRUGS (3)
  1. ENBREL [Suspect]
     Indication: RHEUMATOID ARTHRITIS
     Route: 058
     Dates: start: 20030327, end: 20051101
  2. NAPROXEN [Concomitant]
     Dates: start: 19870101
  3. METHOTREXATE [Concomitant]
     Dates: start: 19860101

REACTIONS (3)
  - ARTHRALGIA [None]
  - DRUG INEFFECTIVE [None]
  - OVARIAN CANCER [None]
